FAERS Safety Report 6293465-4 (Version None)
Quarter: 2009Q3

REPORT INFORMATION
  Report Type: 
  Country: None (occurrence: None)
  Receive Date: 20090803
  Receipt Date: 20070914
  Transmission Date: 20100115
  Serious: Yes (Hospitalization, Other)
  Sender: FDA-Public Use
  Company Number: US-ASTRAZENECA-2007UW16815

PATIENT
  Age: 14669 Day
  Sex: Female
  Weight: 91.2 kg

DRUGS (21)
  1. SEROQUEL [Suspect]
     Indication: AFFECTIVE DISORDER
     Dosage: 100MG-700MG
     Route: 048
     Dates: start: 20010730
  2. SEROQUEL [Suspect]
     Indication: DEPRESSION
     Dosage: 100MG-700MG
     Route: 048
     Dates: start: 20010730
  3. SEROQUEL [Suspect]
     Route: 048
     Dates: start: 20020101, end: 20060101
  4. SEROQUEL [Suspect]
     Route: 048
     Dates: start: 20020101, end: 20060101
  5. ZIPRASIDONE HCL [Concomitant]
     Route: 048
     Dates: start: 20070101
  6. HALDOL [Concomitant]
     Dates: start: 20070101
  7. TRAZODONE HCL [Concomitant]
     Route: 048
  8. CLONAZEPAM [Concomitant]
     Route: 048
  9. GEODON [Concomitant]
     Dates: start: 20070101
  10. PROZAC [Concomitant]
     Dosage: 20MG-30MG
     Route: 048
     Dates: start: 20010730
  11. TRAZODONE HYDROCHLORIDE [Concomitant]
     Route: 048
     Dates: start: 20030918
  12. KLONOPIN [Concomitant]
     Dosage: 0.5MG-1MG
     Route: 048
     Dates: start: 20011002
  13. LORAZEPAM [Concomitant]
     Route: 048
     Dates: start: 20030703
  14. CARISOPRODOL [Concomitant]
     Route: 048
     Dates: start: 20030922
  15. LISINOPRIL [Concomitant]
     Route: 048
     Dates: start: 20030603
  16. HYDROXYZINE [Concomitant]
     Route: 048
     Dates: start: 20030618
  17. ATENOLOL [Concomitant]
     Route: 048
     Dates: start: 20010730
  18. COLACE [Concomitant]
     Route: 048
     Dates: start: 20030624
  19. LASIX [Concomitant]
     Route: 048
     Dates: start: 20021007
  20. PRILOSEC [Concomitant]
     Route: 048
     Dates: start: 20050617
  21. NEXIUM [Concomitant]
     Route: 048
     Dates: start: 20040226

REACTIONS (8)
  - DIABETES MELLITUS [None]
  - DIABETIC KETOACIDOSIS [None]
  - NEUROLEPTIC MALIGNANT SYNDROME [None]
  - NEUROPATHY PERIPHERAL [None]
  - PANCREATITIS [None]
  - PANCREATITIS ACUTE [None]
  - TYPE 1 DIABETES MELLITUS [None]
  - TYPE 2 DIABETES MELLITUS [None]
